FAERS Safety Report 6115784-4 (Version None)
Quarter: 2009Q1

REPORT INFORMATION
  Report Type: 
  Country: None (occurrence: None)
  Receive Date: 20090313
  Receipt Date: 20090303
  Transmission Date: 20090719
  Serious: Yes (Other)
  Sender: FDA-Public Use
  Company Number: US-ALLERGAN-0903316US

PATIENT

DRUGS (6)
  1. BOTOX [Suspect]
     Indication: MUSCLE SPASTICITY
     Dosage: UNK, SINGLE
     Route: 030
  2. PHENOL [Suspect]
     Indication: MUSCLE SPASTICITY
     Dosage: UNK, SINGLE
     Route: 030
  3. MIDAZOLAM HCL [Concomitant]
     Indication: PREOPERATIVE CARE
  4. ACETAMINOPHEN [Concomitant]
     Indication: PREOPERATIVE CARE
  5. ACETAMINOPHEN [Concomitant]
     Indication: POSTOPERATIVE CARE
  6. MORPHINE [Concomitant]
     Indication: POSTOPERATIVE CARE
     Dosage: UNK, PRN
     Route: 042

REACTIONS (2)
  - CONVULSION [None]
  - VOMITING [None]
